FAERS Safety Report 6133157-5 (Version None)
Quarter: 2009Q1

REPORT INFORMATION
  Report Type: 
  Country: None (occurrence: None)
  Receive Date: 20090325
  Receipt Date: 20090325
  Transmission Date: 20090719
  Serious: Yes (Other)
  Sender: FDA-Public Use
  Company Number: None

PATIENT
  Age: 52 Year
  Sex: Female
  Weight: 79.3795 kg

DRUGS (1)
  1. LYRICA [Suspect]
     Indication: MYALGIA
     Dosage: 1 CAPSULE DAILY PO
     Route: 048

REACTIONS (6)
  - AMNESIA [None]
  - ANXIETY [None]
  - DAYDREAMING [None]
  - DEMENTIA ALZHEIMER'S TYPE [None]
  - FEAR [None]
  - FEELING ABNORMAL [None]
